FAERS Safety Report 6452847-8 (Version None)
Quarter: 2009Q4

REPORT INFORMATION
  Report Type: 
  Country: None (occurrence: None)
  Receive Date: 20091116
  Receipt Date: 20091102
  Transmission Date: 20100525
  Serious: Yes (Hospitalization)
  Sender: FDA-Public Use
  Company Number: 2009-4501

PATIENT
  Age: 17 Year
  Sex: Female

DRUGS (2)
  1. DYSPORT [Suspect]
     Indication: HYPERHIDROSIS
     Dosage: (250 UNITS,SINGLE CYCLE) INTRADERMAL
     Route: 023
     Dates: start: 20090501, end: 20090501
  2. XYLOCAIN(LIDOCAINE) [Concomitant]

REACTIONS (5)
  - GAIT DISTURBANCE [None]
  - HYPERAESTHESIA [None]
  - HYPOAESTHESIA [None]
  - PAIN [None]
  - SENSORY DISTURBANCE [None]
